FAERS Safety Report 4618141-2 (Version None)
Quarter: 2005Q1

REPORT INFORMATION
  Report Type: 
  Country: None (occurrence: None)
  Receive Date: 20050323
  Receipt Date: 20050223
  Transmission Date: 20050727
  Serious: No
  Sender: FDA-Public Use
  Company Number: 10510

PATIENT
  Age: 59 Year
  Sex: Male

DRUGS (6)
  1. PACLITAXEL [Suspect]
     Indication: OESOPHAGEAL CARCINOMA
     Dosage: 880 MG/M2 PER_CYCLE IV
     Route: 042
  2. CARBOPLATIN [Suspect]
     Indication: OESOPHAGEAL CARCINOMA
     Dosage: 5 AUC PER_CYCLE IV
     Route: 042
  3. CISPLATIN [Concomitant]
  4. FLUOROURACIL [Concomitant]
  5. EPIRUBICIN [Concomitant]
  6. DOCOSAHEXAENOIC ACID [Suspect]

REACTIONS (5)
  - DISEASE PROGRESSION [None]
  - DRUG EFFECT DECREASED [None]
  - DRUG TOXICITY [None]
  - OESOPHAGEAL CARCINOMA [None]
  - PARAESTHESIA [None]
